FAERS Safety Report 26032193 (Version 1)
Quarter: 2025Q4

REPORT INFORMATION
  Report Type: Spontaneous
  Country: US (occurrence: US)
  Receive Date: 20251112
  Receipt Date: 20251112
  Transmission Date: 20260117
  Serious: No
  Sender: AVERITAS
  Company Number: US-GRUNENTHAL-2025-124906

PATIENT
  Sex: Male

DRUGS (2)
  1. QUTENZA [Suspect]
     Active Substance: CAPSAICIN
     Indication: Diabetic neuropathy
     Dosage: 4 DOSAGE FORM, ONCE
     Route: 061
     Dates: start: 202510
  2. QUTENZA [Suspect]
     Active Substance: CAPSAICIN
     Dosage: 4 DOSAGE FORM, ONCE
     Route: 061

REACTIONS (7)
  - Application site pain [Unknown]
  - Exposure via inhalation [Unknown]
  - Haemoptysis [Unknown]
  - Epistaxis [Unknown]
  - Application site pain [Recovered/Resolved]
  - Application site exfoliation [Unknown]
  - Wrong technique in product usage process [Unknown]

NARRATIVE: CASE EVENT DATE: 20250101
